FAERS Safety Report 18396315 (Version 4)
Quarter: 2024Q1

REPORT INFORMATION
  Report Type: Other
  Country: GB (occurrence: None)
  Receive Date: 20201019
  Receipt Date: 20240329
  Transmission Date: 20240410
  Serious: Yes (Hospitalization, Other)
  Sender: FDA-Public Use
  Company Number: GB-ROCHE-2249963

PATIENT
  Sex: Female

DRUGS (10)
  1. TOCILIZUMAB [Suspect]
     Active Substance: TOCILIZUMAB
     Indication: Rheumatoid arthritis
     Route: 058
     Dates: start: 20180426
  2. TOCILIZUMAB [Suspect]
     Active Substance: TOCILIZUMAB
     Route: 058
     Dates: start: 20190523
  3. TOCILIZUMAB [Suspect]
     Active Substance: TOCILIZUMAB
     Route: 058
     Dates: start: 2018
  4. THYROXINE [Concomitant]
     Active Substance: LEVOTHYROXINE
  5. VESICARE [Concomitant]
     Active Substance: SOLIFENACIN SUCCINATE
  6. TRAMADOL [Concomitant]
     Active Substance: TRAMADOL\TRAMADOL HYDROCHLORIDE
  7. MORPHINE SULFATE [Concomitant]
     Active Substance: MORPHINE SULFATE
  8. BETNOVATE [Concomitant]
     Active Substance: BETAMETHASONE
     Indication: Gingival disorder
     Route: 048
  9. ATORVASTATIN [Concomitant]
     Active Substance: ATORVASTATIN
  10. LEVOTHYROXINE [Concomitant]
     Active Substance: LEVOTHYROXINE\LEVOTHYROXINE SODIUM

REACTIONS (8)
  - Pain [Unknown]
  - Localised infection [Unknown]
  - Rheumatoid arthritis [Unknown]
  - Urinary tract infection [Unknown]
  - Infection [Unknown]
  - Limb injury [Unknown]
  - Nail disorder [Unknown]
  - Purulence [Unknown]
